FAERS Safety Report 6293000-0 (Version None)
Quarter: 2009Q3

REPORT INFORMATION
  Report Type: 
  Country: None (occurrence: None)
  Receive Date: 20090731
  Receipt Date: 20090722
  Transmission Date: 20100115
  Serious: Yes (Hospitalization)
  Sender: FDA-Public Use
  Company Number: CA-MERCK-00118546

PATIENT
  Sex: Male

DRUGS (4)
  1. SINGULAIR [Suspect]
     Indication: ASTHMA
     Route: 048
  2. INSULIN [Concomitant]
     Route: 065
  3. RAMIPRIL [Concomitant]
     Route: 065
  4. BECLOMETHASONE DIPROPIONATE [Concomitant]
     Route: 065

REACTIONS (16)
  - ABASIA [None]
  - BLINDNESS TRANSIENT [None]
  - CHEST PAIN [None]
  - DIARRHOEA [None]
  - DIZZINESS [None]
  - DYSPNOEA [None]
  - EAR INFECTION [None]
  - GAIT DISTURBANCE [None]
  - GASTROOESOPHAGEAL REFLUX DISEASE [None]
  - HYPERHIDROSIS [None]
  - HYPOKINESIA [None]
  - MOVEMENT DISORDER [None]
  - OESOPHAGEAL OBSTRUCTION [None]
  - OESOPHAGEAL STENOSIS [None]
  - SPEECH DISORDER [None]
  - VISUAL IMPAIRMENT [None]
